FAERS Safety Report 9508494 (Version 1)
Quarter: 2013Q3

REPORT INFORMATION
  Report Type: Spontaneous
  Country: US (occurrence: US)
  Receive Date: 20130909
  Receipt Date: 20130909
  Transmission Date: 20140515
  Serious: No
  Sender: FDA-Public Use
  Company Number: US-PFIZER INC-2013257870

PATIENT
  Age: 59 Year
  Sex: Male
  Weight: 136.5 kg

DRUGS (3)
  1. GABAPENTIN [Suspect]
     Indication: FIBROMYALGIA
     Dosage: 100 MG, 6X/DAY
     Dates: end: 201307
  2. CYMBALTA [Concomitant]
     Indication: FIBROMYALGIA
     Dosage: UNK
  3. PLAVIX [Concomitant]
     Indication: COAGULOPATHY
     Dosage: UNK

REACTIONS (4)
  - Off label use [Unknown]
  - Impaired driving ability [Recovered/Resolved]
  - Confusional state [Recovered/Resolved]
  - Amnesia [Recovered/Resolved]
